FAERS Safety Report 24222247 (Version 1)
Quarter: 2024Q3

REPORT INFORMATION
  Report Type: Report from Study
  Country: US (occurrence: US)
  Receive Date: 20240819
  Receipt Date: 20240819
  Transmission Date: 20241016
  Serious: Yes (Other)
  Sender: CSL BEHRING
  Company Number: US-BEH-2024177088

PATIENT
  Age: 46 Year
  Sex: Male
  Weight: 69.85 kg

DRUGS (1)
  1. BERINERT [Suspect]
     Active Substance: HUMAN C1-ESTERASE INHIBITOR
     Indication: Product used for unknown indication
     Dosage: 4000 IU, T2W
     Route: 058

REACTIONS (2)
  - Medical device removal [Unknown]
  - Swelling [Unknown]
